FAERS Safety Report 8049493-1 (Version None)
Quarter: 2012Q1

REPORT INFORMATION
  Report Type: 
  Country: None (occurrence: None)
  Receive Date: 20120117
  Receipt Date: 20120112
  Transmission Date: 20120608
  Serious: Yes (Hospitalization, Other)
  Sender: FDA-Public Use
  Company Number: US-PFIZER INC-2012009647

PATIENT
  Sex: Female

DRUGS (1)
  1. HALCION [Suspect]
     Indication: SLEEP DISORDER
     Dosage: 0.25 MG, 1X/DAY
     Route: 048
     Dates: start: 19800101

REACTIONS (4)
  - HIP ARTHROPLASTY [None]
  - ARTHRITIS [None]
  - HYPERTENSION [None]
  - DRUG INEFFECTIVE [None]
